FAERS Safety Report 23426627 (Version 2)
Quarter: 2024Q1

REPORT INFORMATION
  Report Type: Report from Study
  Country: US (occurrence: US)
  Receive Date: 20240122
  Receipt Date: 20240130
  Transmission Date: 20240410
  Serious: Yes (Hospitalization)
  Sender: FDA-Public Use
  Company Number: US-GILEAD-2024-0658624

PATIENT
  Age: 10 Year
  Sex: Male

DRUGS (3)
  1. AZTREONAM LYSINE [Suspect]
     Active Substance: AZTREONAM LYSINE
     Indication: Cystic fibrosis gastrointestinal disease
     Dosage: UNK
     Route: 065
  2. AMOXICILLIN [Concomitant]
     Active Substance: AMOXICILLIN
     Dosage: UNK
  3. DEVICE\POLYURETHANE [Concomitant]
     Active Substance: DEVICE\POLYURETHANE

REACTIONS (6)
  - Sputum increased [Unknown]
  - Respiratory disorder [Unknown]
  - Productive cough [Unknown]
  - Feeding disorder [Unknown]
  - Gastrointestinal disorder [Unknown]
  - Weight decreased [Unknown]
